FAERS Safety Report 9870170 (Version 1)
Quarter: 2014Q1

REPORT INFORMATION
  Report Type: Spontaneous
  Country: TR (occurrence: None)
  Receive Date: 20140131
  Receipt Date: 20140131
  Transmission Date: 20141002
  Serious: Yes (Other)
  Sender: FDA-Public Use
  Company Number: FK201400303

PATIENT
  Age: 8 Year
  Sex: Male

DRUGS (4)
  1. METHYLPREDNISOLONE [Suspect]
     Indication: HAEMOLYSIS
     Dosage: UNKNOWN, 30 MG/KG/DAY, INTRAVENOUS (NOT OTHERWISE?SPECIFIED)
  2. PREDNISOLONE (PREDNISOLONE) [Concomitant]
  3. FOLIC ACID (FOLIC ACID) [Concomitant]
  4. IMMUNOGLOBULIN (IMMUNOGLOBULIN HUMAN NORMAL) [Concomitant]

REACTIONS (1)
  - Posterior reversible encephalopathy syndrome [None]
